FAERS Safety Report 25922609 (Version 8)
Quarter: 2025Q4

REPORT INFORMATION
  Report Type: Report from Study
  Country: CN (occurrence: CN)
  Receive Date: 20251015
  Receipt Date: 20251223
  Transmission Date: 20260117
  Serious: Yes (Hospitalization)
  Sender: BAXTER
  Company Number: CN-BAXTER-2025BAX022479

PATIENT
  Age: 67 Year
  Sex: Female
  Weight: 54 kg

DRUGS (11)
  1. CYCLOPHOSPHAMIDE [Suspect]
     Active Substance: CYCLOPHOSPHAMIDE
     Indication: Diffuse large B-cell lymphoma
     Dosage: 750 MG/M2, Q3W, EVERY 3 WK (THERAPY DURATION: 46.058 DAYS) (DOSE ADMINISTERED: 1178 MG), (AT 01:27)
     Route: 042
     Dates: start: 20250613, end: 20250729
  2. CYCLOPHOSPHAMIDE [Suspect]
     Active Substance: CYCLOPHOSPHAMIDE
     Dosage: 750 MG/M2, Q3W, EVERY 3 WK
     Route: 042
     Dates: start: 20251016
  3. PREDNISONE [Suspect]
     Active Substance: PREDNISONE
     Indication: Diffuse large B-cell lymphoma
     Dosage: 100 MG, QD, DAYS 1-5 Q3W (CYCLICAL), CYCLICAL (THERAPY DURATION: 49.924 DAYS), (AT 17:39)
     Route: 048
     Dates: start: 20250612, end: 20250801
  4. PREDNISONE [Suspect]
     Active Substance: PREDNISONE
     Dosage: 100 MG, QD, DAYS 1-5 Q3W (CYCLICAL), CYCLICAL
     Route: 048
     Dates: start: 20251016
  5. RITUXIMAB [Suspect]
     Active Substance: RITUXIMAB
     Indication: Diffuse large B-cell lymphoma
     Dosage: 375 MG/M2, Q3W, EVERY 3 WK (THERAPY DURATION: 46.103 DAYS) (DOSE ADMINISTERED: 589 MG), (AT 18:52)
     Route: 042
     Dates: start: 20250612, end: 20250728
  6. RITUXIMAB [Suspect]
     Active Substance: RITUXIMAB
     Dosage: 375 MG/M2, IV Q3W, EVERY 3 WK
     Route: 042
     Dates: start: 20251016
  7. VINCRISTINE [Suspect]
     Active Substance: VINCRISTINE
     Indication: Diffuse large B-cell lymphoma
     Dosage: 1.4 MG/M2, EVERY 3 WK (THERAPY DURATION: 45.918 DAYS), (DOSE ADMINISTERED: 2 MG), (AT 00:28)
     Route: 042
     Dates: start: 20250613, end: 20250728
  8. VINCRISTINE [Suspect]
     Active Substance: VINCRISTINE
     Dosage: 1.4 MG/M2, EVERY 3 WK
     Route: 042
     Dates: start: 20251016
  9. DOXORUBICIN [Suspect]
     Active Substance: DOXORUBICIN
     Indication: Diffuse large B-cell lymphoma
     Dosage: 50 MG/M2, Q3W, EVERY 3 WK (THERAPY DURATION: 45.735 DAYS) (DOSE ADMINISTERED: 78.5 MG), (AT 05:37)
     Route: 042
     Dates: start: 20250613, end: 20250728
  10. DOXORUBICIN [Suspect]
     Active Substance: DOXORUBICIN
     Dosage: 50 MG/M2, Q3W, EVERY 3 WK
     Route: 042
     Dates: start: 20251016
  11. HYDROTALCITE [Concomitant]
     Active Substance: HYDROTALCITE
     Indication: Prophylaxis against gastrointestinal ulcer
     Dosage: 1 G, TID (3 G DAILY)
     Route: 065
     Dates: start: 20250612

REACTIONS (1)
  - Abdominal distension [Recovering/Resolving]

NARRATIVE: CASE EVENT DATE: 20250820
